FAERS Safety Report 6758731-4 (Version None)
Quarter: 2010Q2

REPORT INFORMATION
  Report Type: 
  Country: None (occurrence: None)
  Receive Date: 20100607
  Receipt Date: 20100601
  Transmission Date: 20101027
  Serious: Yes (Other)
  Sender: FDA-Public Use
  Company Number: CA-MERCK-1006USA00237

PATIENT
  Age: 31 Year
  Sex: Female
  Weight: 66 kg

DRUGS (6)
  1. JANUVIA [Suspect]
     Route: 048
  2. LIPITOR [Concomitant]
     Route: 065
  3. LEVEMIR [Concomitant]
     Route: 058
  4. SYNTHROID [Concomitant]
     Route: 065
  5. METFORMIN [Concomitant]
     Route: 065
  6. ALTACE [Concomitant]
     Route: 065

REACTIONS (1)
  - INCREASED APPETITE [None]
